FAERS Safety Report 12394104 (Version 2)
Quarter: 2016Q2

REPORT INFORMATION
  Report Type: Spontaneous
  Country: KR (occurrence: KR)
  Receive Date: 20160523
  Receipt Date: 20160525
  Transmission Date: 20160815
  Serious: Yes (Other)
  Sender: FDA-Public Use
  Company Number: KR-PFIZER INC-2016261545

PATIENT
  Sex: Female

DRUGS (2)
  1. MEMANTINE HCL [Suspect]
     Active Substance: MEMANTINE
     Dosage: UNK
     Route: 048
  2. ZOLOFT [Suspect]
     Active Substance: SERTRALINE HYDROCHLORIDE
     Dosage: 100 MG, UNK
     Route: 048

REACTIONS (3)
  - Parkinson^s disease [Unknown]
  - Balance disorder [Unknown]
  - Dizziness [Unknown]
